FAERS Safety Report 25959515 (Version 1)
Quarter: 2025Q4

REPORT INFORMATION
  Report Type: Spontaneous
  Country: JP (occurrence: JP)
  Receive Date: 20251026
  Receipt Date: 20251026
  Transmission Date: 20260117
  Serious: Yes (Hospitalization)
  Sender: BOEHRINGER INGELHEIM
  Company Number: JP-NBI-2025-BI-103300

PATIENT
  Sex: Female

DRUGS (2)
  1. OFEV [Suspect]
     Active Substance: NINTEDANIB
     Indication: Interstitial lung disease
     Dosage: DAILY DOSE: 150 MILLIGRAM(S)
  2. OFEV [Suspect]
     Active Substance: NINTEDANIB
     Dosage: DAILY DOSE: 100 MILLIGRAM(S)

REACTIONS (2)
  - KL-6 increased [Unknown]
  - Hangover [Unknown]
